FAERS Safety Report 7206554-4 (Version None)
Quarter: 2011Q1

REPORT INFORMATION
  Report Type: 
  Country: None (occurrence: None)
  Receive Date: 20110103
  Receipt Date: 20101221
  Transmission Date: 20110831
  Serious: Yes (Hospitalization)
  Sender: FDA-Public Use
  Company Number: PHHY2010US87743

PATIENT
  Sex: Male

DRUGS (1)
  1. EXJADE [Suspect]
     Dosage: 750 MG, DAILY
     Route: 048

REACTIONS (3)
  - PNEUMONIA [None]
  - SICKLE CELL ANAEMIA WITH CRISIS [None]
  - VOMITING [None]
